FAERS Safety Report 12665003 (Version 1)
Quarter: 2016Q3

REPORT INFORMATION
  Report Type: Spontaneous
  Country: JP (occurrence: JP)
  Receive Date: 20160818
  Receipt Date: 20160818
  Transmission Date: 20161109
  Serious: Yes (Death, Hospitalization)
  Sender: FDA-Public Use
  Company Number: JP-PFIZER INC-2016386925

PATIENT
  Age: 65 Year
  Sex: Female

DRUGS (14)
  1. ISEPAMICIN [Concomitant]
     Active Substance: ISEPAMICIN
     Indication: ANTIBIOTIC THERAPY
  2. VASOPRESSIN. [Concomitant]
     Active Substance: VASOPRESSIN
     Indication: SEPTIC SHOCK
     Dosage: UNK
  3. MEROPENEM. [Suspect]
     Active Substance: MEROPENEM
     Indication: ANTIBIOTIC THERAPY
     Dosage: UNK
  4. ISEPAMICIN [Concomitant]
     Active Substance: ISEPAMICIN
     Indication: PYREXIA
     Dosage: 200 MG, UNK
  5. FLUCONAZOLE. [Concomitant]
     Active Substance: FLUCONAZOLE
     Indication: ANTIBIOTIC THERAPY
     Dosage: UNK
  6. ALBUMIN [Concomitant]
     Active Substance: ALBUMIN HUMAN
     Indication: SEPTIC SHOCK
     Dosage: UNK
  7. CLINDAMYCIN PHOSPHATE. [Suspect]
     Active Substance: CLINDAMYCIN PHOSPHATE
     Indication: ANTIBIOTIC THERAPY
     Dosage: 900 MG, UNK
  8. RINGER^S SOLUTION /03112001/ [Concomitant]
     Indication: SEPTIC SHOCK
     Dosage: UNK
  9. VANCOMYCIN [Concomitant]
     Active Substance: VANCOMYCIN
     Indication: ANTIBIOTIC THERAPY
     Dosage: 1000 MG, UNK
  10. IMMUNOGLOBULINS [Concomitant]
     Active Substance: HUMAN IMMUNOGLOBULIN G
     Indication: SEPTIC SHOCK
     Dosage: UNK
  11. IMIPENEM AND CILASTATIN [Suspect]
     Active Substance: CILASTATIN SODIUM\IMIPENEM
     Indication: ANTIBIOTIC THERAPY
     Dosage: 500 MG, UNK
  12. CIPROFLOXACIN. [Suspect]
     Active Substance: CIPROFLOXACIN
     Indication: ANTIBIOTIC THERAPY
     Dosage: UNK
  13. FOSFOMYCIN [Suspect]
     Active Substance: FOSFOMYCIN
     Indication: ANTIBIOTIC THERAPY
     Dosage: UNK
  14. POLYMYXIN B. [Concomitant]
     Active Substance: POLYMYXIN B
     Dosage: UNK

REACTIONS (3)
  - Sepsis [Fatal]
  - Drug ineffective [Fatal]
  - Multiple organ dysfunction syndrome [Fatal]
